FAERS Safety Report 16394669 (Version 1)
Quarter: 2019Q3

REPORT INFORMATION
  Report Type: Spontaneous
  Country: US (occurrence: US)
  Receive Date: 20190604
  Receipt Date: 20190604
  Transmission Date: 20191004
  Serious: No
  Sender: FDA-Public Use
  Company Number: None

PATIENT
  Age: 72 Year
  Sex: Male

DRUGS (14)
  1. CALCIUM + D 1200MG [Concomitant]
  2. VITAMIN B-12 1000MCG [Concomitant]
  3. ASPIRIN 81MG [Concomitant]
     Active Substance: ASPIRIN
  4. RANITIDINE. [Concomitant]
     Active Substance: RANITIDINE
  5. TAMSULOSIN 0.4MG [Concomitant]
     Active Substance: TAMSULOSIN
  6. AMLODIPINE [Concomitant]
     Active Substance: AMLODIPINE BESYLATE
  7. BRILINTA [Concomitant]
     Active Substance: TICAGRELOR
  8. VITAMIN D 1000U [Concomitant]
  9. REPATHA [Suspect]
     Active Substance: EVOLOCUMAB
     Indication: HYPERLIPIDAEMIA
     Dosage: ?          OTHER FREQUENCY:EVERY 2 WEEKS;?
     Route: 058
     Dates: start: 20190514, end: 20190604
  10. LISINOPRIL 10MG [Concomitant]
     Active Substance: LISINOPRIL
  11. NIACIN 500MG [Concomitant]
  12. MULTIVITAMIN (UNKNOWN BRAND) [Concomitant]
  13. OMEGA-3 1000MG [Concomitant]
  14. VITAMIN C 500MG CHEWABLE TABLETS [Concomitant]

REACTIONS (1)
  - Alopecia [None]

NARRATIVE: CASE EVENT DATE: 20190604
